FAERS Safety Report 19799987 (Version 1)
Quarter: 2021Q3

REPORT INFORMATION
  Report Type: Report from Study
  Country: US (occurrence: US)
  Receive Date: 20210907
  Receipt Date: 20210907
  Transmission Date: 20211014
  Serious: No
  Sender: FDA-Public Use
  Company Number: NVSC2021US202076

PATIENT
  Sex: Female

DRUGS (1)
  1. COSENTYX [Suspect]
     Active Substance: SECUKINUMAB
     Indication: AXIAL SPONDYLOARTHRITIS
     Dosage: 150 MG, QW
     Route: 003

REACTIONS (6)
  - Sexual dysfunction [Unknown]
  - Malaise [Unknown]
  - Hypoaesthesia [Unknown]
  - Paraesthesia [Unknown]
  - Incorrect route of product administration [Unknown]
  - Illness [Unknown]
